FAERS Safety Report 19079521 (Version 2)
Quarter: 2021Q2

REPORT INFORMATION
  Report Type: Spontaneous
  Country: BR (occurrence: BR)
  Receive Date: 20210331
  Receipt Date: 20210407
  Transmission Date: 20210717
  Serious: Yes (Other)
  Sender: FDA-Public Use
  Company Number: BR-IPSEN BIOPHARMACEUTICALS, INC.-2020-03401

PATIENT
  Age: 49 Year
  Sex: Female

DRUGS (17)
  1. FLUOXETIN [Concomitant]
     Active Substance: FLUOXETINE HYDROCHLORIDE
     Dosage: STARTED 9 YEARS AGO (2 TABLETS EACH DAY)
     Route: 048
     Dates: start: 2011
  2. MEVATYL [Suspect]
     Active Substance: NABIXIMOLS
     Dosage: 4 SPRAYS EACH DAY/ 4 ACTUATION
     Route: 002
     Dates: start: 202006, end: 202006
  3. MEVATYL [Suspect]
     Active Substance: NABIXIMOLS
     Route: 002
     Dates: end: 20210310
  4. BOTOX [Suspect]
     Active Substance: ONABOTULINUMTOXINA
     Indication: PRODUCT USED FOR UNKNOWN INDICATION
  5. SIMETHICONE (DIMETHICONE) [Concomitant]
     Active Substance: DIMETHICONE
  6. MEVATYL [Suspect]
     Active Substance: NABIXIMOLS
     Indication: MUSCLE SPASMS
     Dosage: 2 SPRAYS EACH DAY/ 2 ACTUATION
     Route: 002
     Dates: start: 20200610, end: 202006
  7. MEVATYL [Suspect]
     Active Substance: NABIXIMOLS
     Dosage: 4 SPRAYS EACH DAY (PHYSICIAN GUIDE TO REDUCED DOSE FROM 8 SPRAY TO 4 SPRAY)
     Route: 002
     Dates: start: 2020, end: 202011
  8. BACLOFEN. [Concomitant]
     Active Substance: BACLOFEN
     Indication: MULTIPLE SCLEROSIS
     Dosage: 3 TABLETS IN THE MORNING, 3 IN THE AFTERNOON AND 2 AT NIGHT
     Route: 048
  9. DYSPORT [Suspect]
     Active Substance: ABOBOTULINUMTOXINA
     Indication: MUSCLE SPASMS
     Dosage: DOSE NOT REPORTED
     Route: 065
     Dates: start: 2011
  10. MEVATYL [Suspect]
     Active Substance: NABIXIMOLS
     Dosage: 7 ACTUATION EACH DAY/ 7SPRAY
     Route: 002
     Dates: start: 2020, end: 2020
  11. BACLOFEN. [Concomitant]
     Active Substance: BACLOFEN
     Dosage: 3 TABLETS IN THE MORNING, 3 IN THE AFTERNOON AND 3 AT NIGHT
     Route: 048
  12. MEVATYL [Suspect]
     Active Substance: NABIXIMOLS
     Dosage: 6 SPRAYS EACH DAY/ 6 ACTUATION
     Route: 002
     Dates: start: 202006, end: 20200615
  13. MEVATYL [Suspect]
     Active Substance: NABIXIMOLS
     Dosage: 5 SPRAYS/ 5 ACTUATION EACH DAY (PHYSICIAN GUIDE TO REDUCED DOSE FROM 8 SPRAY TO 5 SPRAY)
     Route: 002
     Dates: start: 20201231
  14. ALPRAZOLAM. [Concomitant]
     Active Substance: ALPRAZOLAM
     Indication: SLEEP DISORDER
     Dosage: TABLET 1.5 MG ,EACH DAY (STARTED 10 YEARS AGO)
     Route: 048
     Dates: start: 2010
  15. DYSPORT [Suspect]
     Active Substance: ABOBOTULINUMTOXINA
     Indication: OFF LABEL USE
  16. MEVATYL [Suspect]
     Active Substance: NABIXIMOLS
     Indication: MULTIPLE SCLEROSIS
     Dosage: 7 SPRAYS EACH DAY/ 7 ACTUATION
     Route: 002
     Dates: start: 201903, end: 2020
  17. MEVATYL [Suspect]
     Active Substance: NABIXIMOLS
     Dosage: 8 SPRAYS/8 ACTUATION EACH DAY
     Route: 002
     Dates: start: 20200616, end: 2020

REACTIONS (26)
  - Hiccups [Recovering/Resolving]
  - Nervousness [Unknown]
  - Depression [Unknown]
  - Mental status changes [Unknown]
  - Condition aggravated [Unknown]
  - Dysphonia [Unknown]
  - Therapeutic product effect decreased [Unknown]
  - Flatulence [Recovering/Resolving]
  - Abdominal distension [Recovering/Resolving]
  - Insomnia [Recovering/Resolving]
  - Constipation [Recovering/Resolving]
  - Malaise [Not Recovered/Not Resolved]
  - Disorientation [Unknown]
  - Urinary tract infection [Unknown]
  - Cognitive disorder [Not Recovered/Not Resolved]
  - Musculoskeletal stiffness [Not Recovered/Not Resolved]
  - Muscle spasms [Not Recovered/Not Resolved]
  - Product availability issue [Unknown]
  - Product dose omission issue [Unknown]
  - Amnesia [Recovering/Resolving]
  - Off label use [Unknown]
  - Dysphonia [Recovering/Resolving]
  - Speech disorder [Recovering/Resolving]
  - Confusional state [Recovering/Resolving]
  - Muscle spasms [Unknown]
  - Product distribution issue [Unknown]

NARRATIVE: CASE EVENT DATE: 2011
